FAERS Safety Report 10542248 (Version 2)
Quarter: 2014Q4

REPORT INFORMATION
  Report Type: Spontaneous
  Country: US (occurrence: None)
  Receive Date: 20141010
  Receipt Date: 20141205
  Transmission Date: 20150529
  Serious: No
  Sender: FDA-Public Use
  Company Number: 163-POMAL-14054647

PATIENT
  Age: 80 Year
  Sex: Female
  Weight: 86.2 kg

DRUGS (38)
  1. POMALYST [Suspect]
     Active Substance: POMALIDOMIDE
     Indication: PLASMA CELL MYELOMA
     Dosage: 4 MG, 1 IN 1 D, PO
     Route: 048
     Dates: start: 20140217, end: 20140310
  2. LORTAB (VICODIN) [Concomitant]
  3. SKELAXIN (METAXALONE) [Concomitant]
  4. CALCIUM + VITAMIN D (LEKOVIT CA) [Concomitant]
     Active Substance: CALCIUM\VITAMIN D
  5. VALACYCLOVIR (VALACICLOVIR HYDROCHLORIDE) [Concomitant]
  6. CALCIUM [Concomitant]
     Active Substance: CALCIUM
  7. SYNTHROID [Concomitant]
     Active Substance: LEVOTHYROXINE SODIUM
  8. DURAGESIC (FENTANYL) (POULTICE OR PATCH)? [Concomitant]
  9. MORPHINE [Concomitant]
     Active Substance: MORPHINE
  10. LEVAQUIN [Concomitant]
     Active Substance: LEVOFLOXACIN
  11. VITAMIN B-12 (CYANOCOBALAMIN) [Concomitant]
  12. ASPIRIN (ACETYLSALICYLIC ACID) [Concomitant]
     Active Substance: ASPIRIN
  13. TOPROL XL [Concomitant]
     Active Substance: METOPROLOL SUCCINATE
  14. CRESTOR [Concomitant]
     Active Substance: ROSUVASTATIN CALCIUM
  15. ATARAX [Concomitant]
     Active Substance: HYDROXYZINE\HYDROXYZINE HYDROCHLORIDE
  16. ALPHA LIPOIC ACID (ALPHA LIPOIC ACID) [Concomitant]
  17. KYPROLIS [Concomitant]
     Active Substance: CARFILZOMIB
  18. OXYCODONE (OXYCODONE) [Concomitant]
     Active Substance: OXYCODONE
  19. CLONIDINE (CLONIDINE) [Concomitant]
     Active Substance: CLONIDINE
  20. DECADRON [Concomitant]
     Active Substance: DEXAMETHASONE
  21. AMLODIPINE [Concomitant]
     Active Substance: AMLODIPINE BESYLATE
  22. PRILOSEC (OMEPRAZOLE) [Concomitant]
     Active Substance: OMEPRAZOLE MAGNESIUM
  23. POTASSIUM CL-LIDO [Concomitant]
  24. ZOFRAN (ONDANSETRON HYDROCHLORIDE) [Concomitant]
  25. LEVOFLOXACIN. [Concomitant]
     Active Substance: LEVOFLOXACIN
  26. VALTREX [Concomitant]
     Active Substance: VALACYCLOVIR HYDROCHLORIDE
  27. VESICARE [Concomitant]
     Active Substance: SOLIFENACIN SUCCINATE
  28. NITROQUICK (GLYCERYL TRINITRATE) [Concomitant]
  29. ZOLPIDEM (ZOLPIDEM) [Concomitant]
     Active Substance: ZOLPIDEM TARTRATE
  30. BACTRIM DS (BACTRIM SULFAMETHOZOLE) [Concomitant]
  31. CITALOPARM (CLITALOPRAM) [Concomitant]
  32. LYRICA [Concomitant]
     Active Substance: PREGABALIN
  33. Z-PACK (AZITHROMYCIN) [Concomitant]
  34. MIRALAX (MACROGOL) [Concomitant]
  35. CENTRUM SILVER [Concomitant]
     Active Substance: VITAMINS
  36. TRIAMCINOLONE ACETONIDE. [Concomitant]
     Active Substance: TRIAMCINOLONE ACETONIDE
  37. LASIX [Concomitant]
     Active Substance: FUROSEMIDE
  38. NOVOLOG [Concomitant]
     Active Substance: INSULIN ASPART

REACTIONS (4)
  - Drug intolerance [None]
  - Neuropathy peripheral [None]
  - Influenza like illness [None]
  - Back pain [None]

NARRATIVE: CASE EVENT DATE: 2014
